FAERS Safety Report 16056957 (Version 5)
Quarter: 2019Q2

REPORT INFORMATION
  Report Type: Spontaneous
  Country: JP (occurrence: JP)
  Receive Date: 20190311
  Receipt Date: 20190624
  Transmission Date: 20190711
  Serious: Yes (Hospitalization, Other)
  Sender: FDA-Public Use
  Company Number: JP-PFIZER INC-2019086239

PATIENT
  Age: 83 Year
  Sex: Female

DRUGS (2)
  1. SUTENT [Suspect]
     Active Substance: SUNITINIB MALATE
     Indication: GASTROINTESTINAL STROMAL TUMOUR
     Dosage: 50 MG, UNK
     Dates: start: 20190218, end: 2019
  2. SUTENT [Suspect]
     Active Substance: SUNITINIB MALATE
     Dosage: 37.5 MG, CYCLIC (DAILY WITH ONE-WEEK ADMINISTRATION AND ONE-WEEK REST)
     Dates: start: 20190506, end: 20190520

REACTIONS (14)
  - Dizziness [Unknown]
  - Nutritional condition abnormal [Unknown]
  - Feeding disorder [Unknown]
  - Electrolyte imbalance [Unknown]
  - Hypertension [Unknown]
  - Feeling abnormal [Unknown]
  - Malaise [Unknown]
  - C-reactive protein increased [Unknown]
  - Pyrexia [Unknown]
  - Platelet count decreased [Unknown]
  - Inappropriate schedule of product administration [Unknown]
  - Palmar-plantar erythrodysaesthesia syndrome [Recovered/Resolved]
  - Bone marrow failure [Unknown]
  - Hypothyroidism [Unknown]

NARRATIVE: CASE EVENT DATE: 2019
